FAERS Safety Report 9139940 (Version 2)
Quarter: 2013Q3

REPORT INFORMATION
  Report Type: Spontaneous
  Country: US (occurrence: US)
  Receive Date: 20130305
  Receipt Date: 20130822
  Transmission Date: 20140515
  Serious: Yes (Disabling)
  Sender: FDA-Public Use
  Company Number: US-PFIZER INC-2013076700

PATIENT
  Age: 64 Year
  Sex: Female
  Weight: 72.56 kg

DRUGS (5)
  1. LYRICA [Suspect]
     Indication: NEUROPATHY PERIPHERAL
     Dosage: 100 MG, 3X/DAY
     Route: 048
     Dates: start: 201208, end: 201302
  2. LYRICA [Suspect]
     Indication: SPINAL COLUMN STENOSIS
  3. LYRICA [Suspect]
     Indication: NEUROPATHY PERIPHERAL
  4. LYRICA [Suspect]
     Indication: OSTEOARTHRITIS
  5. CYMBALTA [Concomitant]
     Indication: PAIN
     Dosage: UNK

REACTIONS (6)
  - Spinal disorder [Unknown]
  - Gait disturbance [Unknown]
  - Night sweats [Unknown]
  - Nausea [Unknown]
  - Pruritus [Unknown]
  - Formication [Unknown]
